FAERS Safety Report 7770279-7 (Version None)
Quarter: 2011Q3

REPORT INFORMATION
  Report Type: 
  Country: None (occurrence: None)
  Receive Date: 20110922
  Receipt Date: 20100811
  Transmission Date: 20111222
  Serious: No
  Sender: FDA-Public Use
  Company Number: US-ASTRAZENECA-2010SE37668

PATIENT
  Age: 63 Year
  Sex: Male
  Weight: 72.6 kg

DRUGS (11)
  1. CLONAZEPAM [Concomitant]
  2. HUMALOG [Concomitant]
  3. MELTRAXONE-ON A TRIAL FOR [Concomitant]
     Indication: ALCOHOLISM
  4. METOPROLOL SUCCINATE [Concomitant]
  5. SYNTHROID [Concomitant]
  6. SEROQUEL [Suspect]
     Dosage: 2 TABLETS AT NIGHT AND 2 TABLETS IN MORNING
     Route: 048
     Dates: end: 20100810
  7. SEROQUEL [Suspect]
     Dosage: 2 TABLETS AT NIGHT AND 2 TABLETS IN MORNING
     Route: 048
     Dates: end: 20100810
  8. STATERA [Concomitant]
  9. SEROQUEL [Suspect]
     Indication: SLEEP DISORDER
     Route: 048
  10. SEROQUEL [Suspect]
     Indication: STRESS
     Route: 048
  11. INSULIN-LANTIS [Concomitant]

REACTIONS (4)
  - INCONTINENCE [None]
  - HALLUCINATION [None]
  - BLOOD GLUCOSE INCREASED [None]
  - DRUG DOSE OMISSION [None]
